FAERS Safety Report 18288046 (Version 2)
Quarter: 2020Q4

REPORT INFORMATION
  Report Type: Spontaneous
  Country: US (occurrence: US)
  Receive Date: 20200921
  Receipt Date: 20201008
  Transmission Date: 20210113
  Serious: No
  Sender: FDA-Public Use
  Company Number: US-MYLANLABS-2020M1080399

PATIENT
  Sex: Female

DRUGS (4)
  1. ALPHA LIPOIC ACID [Concomitant]
     Active Substance: .ALPHA.-LIPOIC ACID
     Dosage: 1 DOSAGE FORM, QOD (TUESDAY, THURSDAY, SATURDAY)
  2. PERPHENAZINE. [Suspect]
     Active Substance: PERPHENAZINE
     Indication: PSYCHOTIC DISORDER
     Dosage: 4 MILLIGRAM, BID (2 TIMES A DAY)
     Route: 048
  3. COD LIVER OIL [Concomitant]
     Active Substance: COD LIVER OIL
     Dosage: 2 DOSAGE FORM, QOD (MONDAY, WEDNESDAY, FRIDAY)
  4. LUTEOLIN [Concomitant]
     Dosage: 1 DOSAGE FORM, QOD (TUESDAY, THURSDAY, SATURDAY)

REACTIONS (4)
  - Agitation [Not Recovered/Not Resolved]
  - Screaming [Unknown]
  - Inappropriate schedule of product administration [Unknown]
  - Anger [Not Recovered/Not Resolved]
